FAERS Safety Report 10239810 (Version 1)
Quarter: 2014Q2

REPORT INFORMATION
  Report Type: Spontaneous
  Country: US (occurrence: US)
  Receive Date: 20140616
  Receipt Date: 20140616
  Transmission Date: 20141212
  Serious: Yes (Hospitalization, Other)
  Sender: FDA-Public Use
  Company Number: US-B.I. PHARMACEUTICALS,INC./RIDGEFIELD-2014-BI-26705BP

PATIENT
  Age: 62 Year
  Sex: Female
  Weight: 73 kg

DRUGS (4)
  1. COMBIVENT [Suspect]
     Indication: ASTHMA
     Dosage: STRENGTH: 20 MCG / 100 MCG; DAILY DOSE: 80 MCG/ 400 MCG
     Route: 055
     Dates: start: 2012
  2. DUCOSATE [Concomitant]
     Indication: CONSTIPATION
     Dosage: 200 MG
     Route: 048
     Dates: start: 201402
  3. DOK + [Concomitant]
     Indication: CONSTIPATION
     Route: 048
  4. FLONASE [Concomitant]
     Indication: SEASONAL ALLERGY
     Dosage: FORMULATION: NASAL SPRAY
     Route: 045

REACTIONS (6)
  - Brain neoplasm [Recovered/Resolved]
  - Confusional state [Not Recovered/Not Resolved]
  - Asthenia [Recovered/Resolved]
  - Nausea [Recovered/Resolved]
  - Headache [Not Recovered/Not Resolved]
  - Off label use [Not Recovered/Not Resolved]
